FAERS Safety Report 7389204-6 (Version None)
Quarter: 2011Q1

REPORT INFORMATION
  Report Type: 
  Country: None (occurrence: None)
  Receive Date: 20110329
  Receipt Date: 20110329
  Transmission Date: 20110831
  Serious: No
  Sender: FDA-Public Use
  Company Number: None

PATIENT
  Sex: Female
  Weight: 77.1115 kg

DRUGS (1)
  1. LATISSE [Suspect]
     Dosage: 2 DROPS
     Dates: start: 20100128

REACTIONS (3)
  - EYE IRRITATION [None]
  - PRODUCT QUALITY ISSUE [None]
  - ERYTHEMA [None]
